FAERS Safety Report 8885964 (Version 1)
Quarter: 2012Q4

REPORT INFORMATION
  Report Type: 
  Country: IT (occurrence: IT)
  Receive Date: 20121105
  Receipt Date: 20121105
  Transmission Date: 20130627
  Serious: Yes (Congenital Anomaly)
  Sender: FDA-Public Use
  Company Number: IT-JNJFOC-20121012925

PATIENT

DRUGS (5)
  1. DOXORUBICIN [Suspect]
     Indication: FOETAL EXPOSURE DURING PREGNANCY
     Dosage: 25 mg/m2 every 28 days given to the mother of the patient
     Route: 064
  2. BLEOMYCIN [Suspect]
     Indication: FOETAL EXPOSURE DURING PREGNANCY
     Dosage: 10 mg/ m2 every 28 days given to the mother
     Route: 064
  3. VINBLASTINE [Suspect]
     Indication: FOETAL EXPOSURE DURING PREGNANCY
     Dosage: 6 mg/m2 every 28 days given to the mother
     Route: 064
  4. DACARBAZINE [Suspect]
     Indication: FOETAL EXPOSURE DURING PREGNANCY
     Dosage: 375 mg/m2 delivered every 28 days to the mother
     Route: 064
  5. RADIOTHERAPY [Suspect]
     Indication: FOETAL EXPOSURE DURING PREGNANCY
     Route: 064

REACTIONS (1)
  - Gastroschisis [Unknown]
